FAERS Safety Report 11934573 (Version 1)
Quarter: 2016Q1

REPORT INFORMATION
  Report Type: Spontaneous
  Country: US (occurrence: None)
  Receive Date: 20160120
  Receipt Date: 20160120
  Transmission Date: 20160526
  Serious: Yes (Disabling)
  Sender: FDA-Public Use
  Company Number: None

PATIENT
  Age: 41 Year
  Sex: Female
  Weight: 58.97 kg

DRUGS (5)
  1. ORTHO TRI CYCLEN [Concomitant]
     Active Substance: ETHINYL ESTRADIOL\NORGESTIMATE
  2. ESTER-C [Concomitant]
     Active Substance: CALCIUM\VITAMINS
  3. BIO KULT PROBIOTIC [Concomitant]
  4. SUDAFED-D [Concomitant]
  5. LEVAQUIN [Suspect]
     Active Substance: LEVOFLOXACIN
     Indication: SINUSITIS
     Dosage: 1 PILL, ONCE DAILY, TAKEN BY MOUTH
     Route: 048
     Dates: start: 20151221, end: 20151228

REACTIONS (10)
  - Headache [None]
  - Joint stiffness [None]
  - Mental impairment [None]
  - Arthralgia [None]
  - Muscle spasms [None]
  - Feeling abnormal [None]
  - Pain [None]
  - Vertigo [None]
  - Musculoskeletal stiffness [None]
  - Muscular weakness [None]

NARRATIVE: CASE EVENT DATE: 20151222
